FAERS Safety Report 5885006-8 (Version None)
Quarter: 2008Q3

REPORT INFORMATION
  Report Type: 
  Country: None (occurrence: None)
  Receive Date: 20080915
  Receipt Date: 20080915
  Transmission Date: 20090109
  Serious: Yes (Hospitalization)
  Sender: FDA-Public Use
  Company Number: None

PATIENT
  Sex: Female
  Weight: 82 kg

DRUGS (1)
  1. TEMOZOLOMIDE [Suspect]
     Dosage: 105.5 MG
     Dates: end: 20080811

REACTIONS (6)
  - ANOREXIA [None]
  - ATRIAL FLUTTER [None]
  - BLOOD GLUCOSE INCREASED [None]
  - HYPERTENSION [None]
  - LETHARGY [None]
  - TROPONIN [None]
